FAERS Safety Report 24915663 (Version 3)
Quarter: 2025Q2

REPORT INFORMATION
  Report Type: Spontaneous
  Country: CA (occurrence: CA)
  Receive Date: 20250203
  Receipt Date: 20250625
  Transmission Date: 20250716
  Serious: Yes (Death, Other)
  Sender: Haleon PLC
  Company Number: CA-HALEON-2224602

PATIENT
  Sex: Female

DRUGS (191)
  1. POLIDENT PRO PARTIAL [Suspect]
     Active Substance: SODIUM FLUORIDE
     Indication: Product used for unknown indication
  2. ADALIMUMAB [Suspect]
     Active Substance: ADALIMUMAB
     Indication: Product used for unknown indication
     Route: 048
  3. ADALIMUMAB [Suspect]
     Active Substance: ADALIMUMAB
     Route: 042
  4. GRAMICIDIN [Suspect]
     Active Substance: GRAMICIDIN
     Indication: Product used for unknown indication
  5. CALCIUM CARBONATE [Suspect]
     Active Substance: CALCIUM CARBONATE
     Indication: Product used for unknown indication
     Route: 016
  6. DICLOFENAC POTASSIUM [Suspect]
     Active Substance: DICLOFENAC POTASSIUM
     Indication: Product used for unknown indication
  7. DICLOFENAC POTASSIUM [Suspect]
     Active Substance: DICLOFENAC POTASSIUM
  8. DICLOFENAC POTASSIUM [Suspect]
     Active Substance: DICLOFENAC POTASSIUM
  9. DICLOFENAC POTASSIUM [Suspect]
     Active Substance: DICLOFENAC POTASSIUM
     Dosage: ROUTE: UNKNOWN
  10. DICLOFENAC POTASSIUM [Suspect]
     Active Substance: DICLOFENAC POTASSIUM
     Route: 058
  11. DICLOFENAC POTASSIUM [Suspect]
     Active Substance: DICLOFENAC POTASSIUM
     Dosage: ROUTE: UNKNOWN
  12. CALTRATE [Suspect]
     Active Substance: CALCIUM CARBONATE
     Indication: Product used for unknown indication
  13. VITAMIN D3 [Suspect]
     Active Substance: CHOLECALCIFEROL
     Indication: Product used for unknown indication
     Route: 016
  14. VITAMIN D3 [Suspect]
     Active Substance: CHOLECALCIFEROL
     Route: 058
  15. VITAMIN D3 [Suspect]
     Active Substance: CHOLECALCIFEROL
  16. ACETAMINOPHEN [Suspect]
     Active Substance: ACETAMINOPHEN
     Indication: Product used for unknown indication
  17. ACETAMINOPHEN [Suspect]
     Active Substance: ACETAMINOPHEN
  18. DICLOFENAC SODIUM [Suspect]
     Active Substance: DICLOFENAC SODIUM
     Indication: Product used for unknown indication
  19. DICLOFENAC SODIUM [Suspect]
     Active Substance: DICLOFENAC SODIUM
  20. AZATHIOPRINE [Suspect]
     Active Substance: AZATHIOPRINE
     Indication: Product used for unknown indication
  21. ADALIMUMAB [Suspect]
     Active Substance: ADALIMUMAB
     Indication: Product used for unknown indication
     Route: 048
  22. ADALIMUMAB [Suspect]
     Active Substance: ADALIMUMAB
     Route: 058
  23. ALENDRONATE SODIUM [Suspect]
     Active Substance: ALENDRONATE SODIUM
     Indication: Product used for unknown indication
  24. PANTOPRAZOLE SODIUM [Suspect]
     Active Substance: PANTOPRAZOLE SODIUM
     Indication: Product used for unknown indication
     Route: 016
  25. APREMILAST [Suspect]
     Active Substance: APREMILAST
     Indication: Product used for unknown indication
     Dosage: ROUTE: UNKNOWN
  26. IMURAN [Suspect]
     Active Substance: AZATHIOPRINE
     Indication: Product used for unknown indication
  27. CALCIUM CITRATE [Suspect]
     Active Substance: CALCIUM CITRATE
     Indication: Product used for unknown indication
  28. DESOXIMETASONE [Suspect]
     Active Substance: DESOXIMETASONE
     Indication: Product used for unknown indication
     Route: 048
  29. DESOXIMETASONE [Suspect]
     Active Substance: DESOXIMETASONE
     Route: 048
  30. DESOXIMETASONE [Suspect]
     Active Substance: DESOXIMETASONE
     Indication: Product used for unknown indication
     Route: 003
  31. DESOXIMETASONE [Suspect]
     Active Substance: DESOXIMETASONE
     Route: 003
  32. ISOPROPYL ALCOHOL [Suspect]
     Active Substance: ISOPROPYL ALCOHOL
     Indication: Product used for unknown indication
     Route: 048
  33. PREGABALIN [Suspect]
     Active Substance: PREGABALIN
     Indication: Product used for unknown indication
  34. MESALAMINE [Suspect]
     Active Substance: MESALAMINE
     Indication: Product used for unknown indication
  35. METHOTREXATE [Suspect]
     Active Substance: METHOTREXATE
     Indication: Product used for unknown indication
     Route: 058
  36. METHOTREXATE [Suspect]
     Active Substance: METHOTREXATE
     Dosage: ROUTE: UNKNOWN
  37. METHOTREXATE [Suspect]
     Active Substance: METHOTREXATE
     Route: 048
  38. METHOTREXATE [Suspect]
     Active Substance: METHOTREXATE
     Route: 048
  39. METHOTREXATE [Suspect]
     Active Substance: METHOTREXATE
     Route: 048
  40. METHOTREXATE [Suspect]
     Active Substance: METHOTREXATE
     Route: 013
  41. METHOTREXATE [Suspect]
     Active Substance: METHOTREXATE
     Route: 048
  42. METHOTREXATE [Suspect]
     Active Substance: METHOTREXATE
     Route: 048
  43. METHOTREXATE [Suspect]
     Active Substance: METHOTREXATE
     Route: 048
  44. METHOTREXATE [Suspect]
     Active Substance: METHOTREXATE
     Route: 048
  45. METHOTREXATE [Suspect]
     Active Substance: METHOTREXATE
     Route: 032
  46. METHOTREXATE [Suspect]
     Active Substance: METHOTREXATE
     Route: 048
  47. METHOTREXATE [Suspect]
     Active Substance: METHOTREXATE
     Dosage: ROUTE: UNKNOWN
  48. METHOTREXATE [Suspect]
     Active Substance: METHOTREXATE
     Route: 058
  49. METHOTREXATE [Suspect]
     Active Substance: METHOTREXATE
     Route: 013
  50. METHYLPREDNISOLONE SODIUM SUCCINATE [Suspect]
     Active Substance: METHYLPREDNISOLONE SODIUM SUCCINATE
     Indication: Product used for unknown indication
     Route: 048
  51. MORPHINE SULFATE [Suspect]
     Active Substance: MORPHINE SULFATE
     Indication: Product used for unknown indication
  52. MYCOPHENOLATE MOFETIL [Suspect]
     Active Substance: MYCOPHENOLATE MOFETIL
     Indication: Product used for unknown indication
  53. NAPROXEN [Suspect]
     Active Substance: NAPROXEN
     Indication: Product used for unknown indication
     Dosage: ROUTE: UNKNOWN
  54. NITROFURAZONE [Suspect]
     Active Substance: NITROFURAZONE
     Indication: Product used for unknown indication
     Route: 048
  55. NITROFURAZONE [Suspect]
     Active Substance: NITROFURAZONE
     Route: 048
  56. ORENCIA [Suspect]
     Active Substance: ABATACEPT
     Indication: Product used for unknown indication
     Route: 058
  57. ORENCIA [Suspect]
     Active Substance: ABATACEPT
     Route: 058
  58. ORENCIA [Suspect]
     Active Substance: ABATACEPT
     Route: 058
  59. ORENCIA [Suspect]
     Active Substance: ABATACEPT
     Route: 058
  60. ORENCIA [Suspect]
     Active Substance: ABATACEPT
     Route: 042
  61. ORENCIA [Suspect]
     Active Substance: ABATACEPT
     Dosage: ROUTE: UNKNOWN
  62. ORENCIA [Suspect]
     Active Substance: ABATACEPT
     Route: 042
  63. ORENCIA [Suspect]
     Active Substance: ABATACEPT
     Route: 042
  64. ORENCIA [Suspect]
     Active Substance: ABATACEPT
     Route: 058
  65. ORENCIA [Suspect]
     Active Substance: ABATACEPT
     Route: 053
  66. ORENCIA [Suspect]
     Active Substance: ABATACEPT
     Dosage: ROUTE: UNKNOWN
  67. ORENCIA [Suspect]
     Active Substance: ABATACEPT
     Dosage: ROUTE: UNKNOWN
  68. CALCIUM GLUBIONATE [Suspect]
     Active Substance: CALCIUM GLUBIONATE
     Indication: Product used for unknown indication
  69. CELECOXIB [Suspect]
     Active Substance: CELECOXIB
     Indication: Product used for unknown indication
     Dosage: ROUTE: UNKNOWN
  70. CELECOXIB [Suspect]
     Active Substance: CELECOXIB
     Route: 048
  71. CELECOXIB [Suspect]
     Active Substance: CELECOXIB
  72. CETIRIZINE HYDROCHLORIDE [Suspect]
     Active Substance: CETIRIZINE HYDROCHLORIDE
     Indication: Product used for unknown indication
     Route: 048
  73. CETIRIZINE HYDROCHLORIDE [Suspect]
     Active Substance: CETIRIZINE HYDROCHLORIDE
     Route: 048
  74. CETIRIZINE HYDROCHLORIDE [Suspect]
     Active Substance: CETIRIZINE HYDROCHLORIDE
  75. CETIRIZINE HYDROCHLORIDE [Suspect]
     Active Substance: CETIRIZINE HYDROCHLORIDE
  76. CHLORHEXIDINE GLUCONATE [Suspect]
     Active Substance: CHLORHEXIDINE GLUCONATE
     Indication: Product used for unknown indication
     Route: 002
  77. CHLORHEXIDINE GLUCONATE\ISOPROPYL ALCOHOL [Suspect]
     Active Substance: CHLORHEXIDINE GLUCONATE\ISOPROPYL ALCOHOL
     Indication: Product used for unknown indication
  78. CHLORHEXIDINE GLUCONATE\ISOPROPYL ALCOHOL [Suspect]
     Active Substance: CHLORHEXIDINE GLUCONATE\ISOPROPYL ALCOHOL
     Route: 048
  79. CIMZIA [Suspect]
     Active Substance: CERTOLIZUMAB PEGOL
     Indication: Product used for unknown indication
     Route: 058
  80. CIMZIA [Suspect]
     Active Substance: CERTOLIZUMAB PEGOL
     Indication: Product used for unknown indication
     Route: 058
  81. CIMZIA [Suspect]
     Active Substance: CERTOLIZUMAB PEGOL
     Route: 058
  82. CLONIDINE HYDROCHLORIDE [Suspect]
     Active Substance: CLONIDINE HYDROCHLORIDE
     Indication: Product used for unknown indication
  83. HYDROCORTISONE ACETATE [Suspect]
     Active Substance: HYDROCORTISONE ACETATE
     Indication: Product used for unknown indication
  84. CORTISONE ACETATE [Suspect]
     Active Substance: CORTISONE ACETATE
     Indication: Product used for unknown indication
     Route: 003
  85. CORTISONE ACETATE [Suspect]
     Active Substance: CORTISONE ACETATE
  86. DILTIAZEM HYDROCHLORIDE [Suspect]
     Active Substance: DILTIAZEM HYDROCHLORIDE
     Indication: Product used for unknown indication
     Route: 042
  87. DIPHENHYDRAMINE HYDROCHLORIDE [Suspect]
     Active Substance: DIPHENHYDRAMINE HYDROCHLORIDE
     Indication: Product used for unknown indication
  88. DOXYCYCLINE HYCLATE [Suspect]
     Active Substance: DOXYCYCLINE HYCLATE
     Indication: Product used for unknown indication
  89. ENBREL [Suspect]
     Active Substance: ETANERCEPT
     Indication: Product used for unknown indication
     Route: 058
  90. ENBREL [Suspect]
     Active Substance: ETANERCEPT
     Route: 058
  91. ENBREL [Suspect]
     Active Substance: ETANERCEPT
     Route: 058
  92. ENBREL [Suspect]
     Active Substance: ETANERCEPT
     Route: 058
  93. ENTYVIO [Suspect]
     Active Substance: VEDOLIZUMAB
     Indication: Product used for unknown indication
  94. ERELZI [Suspect]
     Active Substance: ETANERCEPT-SZZS
     Indication: Product used for unknown indication
     Route: 058
  95. ERELZI [Suspect]
     Active Substance: ETANERCEPT-SZZS
     Route: 058
  96. ERELZI [Suspect]
     Active Substance: ETANERCEPT-SZZS
     Route: 058
  97. ERELZI [Suspect]
     Active Substance: ETANERCEPT-SZZS
     Route: 058
  98. FOLIC ACID [Suspect]
     Active Substance: FOLIC ACID
     Indication: Product used for unknown indication
  99. FOLIC ACID [Suspect]
     Active Substance: FOLIC ACID
  100. FOLIC ACID [Suspect]
     Active Substance: FOLIC ACID
  101. FOLIC ACID [Suspect]
     Active Substance: FOLIC ACID
  102. FOLIC ACID [Suspect]
     Active Substance: FOLIC ACID
  103. FOLIC ACID [Suspect]
     Active Substance: FOLIC ACID
  104. FOLIC ACID [Suspect]
     Active Substance: FOLIC ACID
  105. FOLIC ACID [Suspect]
     Active Substance: FOLIC ACID
  106. FOLIC ACID [Suspect]
     Active Substance: FOLIC ACID
     Dosage: ROUTE: ENDOCERVICAL
  107. FOLIC ACID [Suspect]
     Active Substance: FOLIC ACID
  108. FRAMYCETIN SULFATE [Suspect]
     Active Substance: FRAMYCETIN SULFATE
     Indication: Product used for unknown indication
  109. HUMIRA [Suspect]
     Active Substance: ADALIMUMAB
     Indication: Product used for unknown indication
     Route: 058
  110. HUMIRA [Suspect]
     Active Substance: ADALIMUMAB
     Route: 058
  111. HUMIRA [Suspect]
     Active Substance: ADALIMUMAB
     Route: 058
  112. HUMIRA [Suspect]
     Active Substance: ADALIMUMAB
     Route: 058
  113. HUMIRA [Suspect]
     Active Substance: ADALIMUMAB
     Indication: Product used for unknown indication
     Route: 058
  114. HUMIRA [Suspect]
     Active Substance: ADALIMUMAB
     Route: 058
  115. HYDROCORTISONE SODIUM SUCCINATE [Suspect]
     Active Substance: HYDROCORTISONE SODIUM SUCCINATE
     Indication: Product used for unknown indication
  116. HYDROCORTISONE SODIUM SUCCINATE [Suspect]
     Active Substance: HYDROCORTISONE SODIUM SUCCINATE
  117. HYDROCORTISONE SODIUM SUCCINATE [Suspect]
     Active Substance: HYDROCORTISONE SODIUM SUCCINATE
  118. HYDROXYCHLOROQUINE [Suspect]
     Active Substance: HYDROXYCHLOROQUINE
     Indication: Product used for unknown indication
     Route: 048
  119. HYDROXYCHLOROQUINE [Suspect]
     Active Substance: HYDROXYCHLOROQUINE
     Route: 048
  120. HYDROXYCHLOROQUINE [Suspect]
     Active Substance: HYDROXYCHLOROQUINE
     Route: 058
  121. HYDROXYCHLOROQUINE [Suspect]
     Active Substance: HYDROXYCHLOROQUINE
     Route: 048
  122. HYDROXYCHLOROQUINE SULFATE [Suspect]
     Active Substance: HYDROXYCHLOROQUINE SULFATE
     Indication: Product used for unknown indication
     Dosage: ROUTE: UNKNOWN
  123. HYDROXYCHLOROQUINE SULFATE [Suspect]
     Active Substance: HYDROXYCHLOROQUINE SULFATE
     Dosage: ROUTE: UNKNOWN
  124. HYDROXYCHLOROQUINE SULFATE [Suspect]
     Active Substance: HYDROXYCHLOROQUINE SULFATE
  125. HYDROXYCHLOROQUINE SULFATE [Suspect]
     Active Substance: HYDROXYCHLOROQUINE SULFATE
  126. HYDROXYCHLOROQUINE SULFATE [Suspect]
     Active Substance: HYDROXYCHLOROQUINE SULFATE
  127. HYDROXYCHLOROQUINE SULFATE [Suspect]
     Active Substance: HYDROXYCHLOROQUINE SULFATE
     Dosage: ROUTE: OROPHARINGEAL
  128. HYDROXYCHLOROQUINE SULFATE [Suspect]
     Active Substance: HYDROXYCHLOROQUINE SULFATE
     Dosage: ROUTE: ORAL
  129. PREDNISONE [Suspect]
     Active Substance: PREDNISONE
     Indication: Product used for unknown indication
     Route: 048
  130. PREDNISONE [Suspect]
     Active Substance: PREDNISONE
     Route: 048
  131. PREDNISONE [Suspect]
     Active Substance: PREDNISONE
     Route: 048
  132. PREDNISONE [Suspect]
     Active Substance: PREDNISONE
     Route: 048
  133. PREDNISONE [Suspect]
     Active Substance: PREDNISONE
     Route: 048
  134. PREDNISONE [Suspect]
     Active Substance: PREDNISONE
     Route: 048
  135. PSEUDOEPHEDRINE HYDROCHLORIDE [Suspect]
     Active Substance: PSEUDOEPHEDRINE HYDROCHLORIDE
     Indication: Product used for unknown indication
  136. QUETIAPINE FUMARATE [Suspect]
     Active Substance: QUETIAPINE FUMARATE
     Indication: Product used for unknown indication
  137. REMICADE [Suspect]
     Active Substance: INFLIXIMAB
     Indication: Product used for unknown indication
     Route: 042
  138. REMICADE [Suspect]
     Active Substance: INFLIXIMAB
     Indication: Product used for unknown indication
     Route: 042
  139. SALICYLIC ACID [Suspect]
     Active Substance: SALICYLIC ACID
     Indication: Product used for unknown indication
  140. SIMPONI [Suspect]
     Active Substance: GOLIMUMAB
     Indication: Product used for unknown indication
  141. STELARA [Suspect]
     Active Substance: USTEKINUMAB
     Indication: Product used for unknown indication
     Route: 042
  142. SULFAMETHOXAZOLE\TRIMETHOPRIM [Suspect]
     Active Substance: SULFAMETHOXAZOLE\TRIMETHOPRIM
     Indication: Product used for unknown indication
     Route: 067
  143. SULFASALAZINE [Suspect]
     Active Substance: SULFASALAZINE
     Indication: Product used for unknown indication
     Route: 058
  144. SULFASALAZINE [Suspect]
     Active Substance: SULFASALAZINE
     Route: 058
  145. SULFASALAZINE [Suspect]
     Active Substance: SULFASALAZINE
     Route: 058
  146. SULFASALAZINE [Suspect]
     Active Substance: SULFASALAZINE
     Route: 058
  147. SULFASALAZINE [Suspect]
     Active Substance: SULFASALAZINE
     Route: 048
  148. SULFASALAZINE [Suspect]
     Active Substance: SULFASALAZINE
     Route: 058
  149. SULFASALAZINE [Suspect]
     Active Substance: SULFASALAZINE
     Route: 058
  150. THYMOL [Suspect]
     Active Substance: THYMOL
     Indication: Product used for unknown indication
     Route: 048
  151. THYMOL [Suspect]
     Active Substance: THYMOL
     Route: 048
  152. TOCILIZUMAB [Suspect]
     Active Substance: TOCILIZUMAB
     Indication: Product used for unknown indication
     Route: 032
  153. TOCILIZUMAB [Suspect]
     Active Substance: TOCILIZUMAB
     Route: 042
  154. TOCILIZUMAB [Suspect]
     Active Substance: TOCILIZUMAB
     Route: 058
  155. TOCILIZUMAB [Suspect]
     Active Substance: TOCILIZUMAB
     Route: 058
  156. TOCILIZUMAB [Suspect]
     Active Substance: TOCILIZUMAB
     Route: 042
  157. TOCILIZUMAB [Suspect]
     Active Substance: TOCILIZUMAB
     Route: 058
  158. TOCILIZUMAB [Suspect]
     Active Substance: TOCILIZUMAB
     Route: 042
  159. TOCILIZUMAB [Suspect]
     Active Substance: TOCILIZUMAB
     Route: 048
  160. TOCILIZUMAB [Suspect]
     Active Substance: TOCILIZUMAB
     Route: 048
  161. TOCILIZUMAB [Suspect]
     Active Substance: TOCILIZUMAB
     Route: 058
  162. TOCILIZUMAB [Suspect]
     Active Substance: TOCILIZUMAB
     Route: 042
  163. TOCILIZUMAB [Suspect]
     Active Substance: TOCILIZUMAB
     Route: 042
  164. TOFACITINIB CITRATE [Suspect]
     Active Substance: TOFACITINIB CITRATE
     Indication: Product used for unknown indication
     Dosage: ROUTE: UNKNOWN
  165. TRAMADOL HYDROCHLORIDE [Suspect]
     Active Substance: TRAMADOL HYDROCHLORIDE
     Indication: Product used for unknown indication
  166. TRIAMCINOLONE ACETONIDE [Suspect]
     Active Substance: TRIAMCINOLONE ACETONIDE
     Indication: Product used for unknown indication
     Route: 014
  167. TRICLOSAN [Suspect]
     Active Substance: TRICLOSAN
     Indication: Product used for unknown indication
  168. TYROTHRICIN [Suspect]
     Active Substance: TYROTHRICIN
     Indication: Product used for unknown indication
     Route: 048
  169. TYROTHRICIN [Suspect]
     Active Substance: TYROTHRICIN
     Route: 048
  170. XELJANZ [Suspect]
     Active Substance: TOFACITINIB CITRATE
     Indication: Product used for unknown indication
  171. XELJANZ [Suspect]
     Active Substance: TOFACITINIB CITRATE
     Route: 048
  172. OTEZLA [Suspect]
     Active Substance: APREMILAST
     Indication: Product used for unknown indication
     Dosage: ROUTE: UNKNOWN
  173. OTEZLA [Suspect]
     Active Substance: APREMILAST
     Route: 048
  174. OTEZLA [Suspect]
     Active Substance: APREMILAST
     Route: 048
  175. OTEZLA [Suspect]
     Active Substance: APREMILAST
     Dosage: ROUTE: UNKNOWN
  176. OXYCODONE [Suspect]
     Active Substance: OXYCODONE
     Indication: Product used for unknown indication
  177. OXYCODONE [Suspect]
     Active Substance: OXYCODONE
  178. OXYCODONE TEREPHTHALATE [Suspect]
     Active Substance: OXYCODONE TEREPHTHALATE
     Indication: Product used for unknown indication
  179. PARA-AMINOSALICYLIC ACID [Suspect]
     Active Substance: AMINOSALICYLIC ACID
     Indication: Product used for unknown indication
  180. PHTHALYLSULFATHIAZOLE [Suspect]
     Active Substance: PHTHALYLSULFATHIAZOLE
     Indication: Product used for unknown indication
     Dosage: ROUTE: UNKNOWN
  181. PHTHALYLSULFATHIAZOLE [Suspect]
     Active Substance: PHTHALYLSULFATHIAZOLE
     Route: 048
  182. PHTHALYLSULFATHIAZOLE [Suspect]
     Active Substance: PHTHALYLSULFATHIAZOLE
     Route: 048
  183. PHTHALYLSULFATHIAZOLE [Suspect]
     Active Substance: PHTHALYLSULFATHIAZOLE
     Route: 016
  184. PHTHALYLSULFATHIAZOLE [Suspect]
     Active Substance: PHTHALYLSULFATHIAZOLE
     Route: 048
  185. PHTHALYLSULFATHIAZOLE [Suspect]
     Active Substance: PHTHALYLSULFATHIAZOLE
     Route: 058
  186. CORTISONE [Suspect]
     Active Substance: CORTISONE
     Indication: Product used for unknown indication
  187. LYRICA [Suspect]
     Active Substance: PREGABALIN
     Indication: Product used for unknown indication
  188. ADALIMUMAB [Suspect]
     Active Substance: ADALIMUMAB
     Indication: Product used for unknown indication
     Route: 058
  189. VITAMIN D3 [Suspect]
     Active Substance: CHOLECALCIFEROL
     Indication: Product used for unknown indication
     Route: 058
  190. CELECOXIB [Suspect]
     Active Substance: CELECOXIB
     Indication: Product used for unknown indication
     Route: 058
  191. SULFATRIM [Suspect]
     Active Substance: SULFAMETHOXAZOLE\TRIMETHOPRIM
     Indication: Product used for unknown indication
     Route: 067

REACTIONS (12)
  - Type 2 diabetes mellitus [Fatal]
  - Weight decreased [Fatal]
  - Visual impairment [Fatal]
  - Wound infection [Fatal]
  - Upper respiratory tract infection [Fatal]
  - Walking aid user [Fatal]
  - Prescribed underdose [Fatal]
  - Wheezing [Fatal]
  - Urticaria [Fatal]
  - Wound [Fatal]
  - Vomiting [Fatal]
  - Weight increased [Fatal]
